APPROVED DRUG PRODUCT: THALLOUS CHLORIDE TL 201
Active Ingredient: THALLOUS CHLORIDE TL-201
Strength: 2mCi/ML
Dosage Form/Route: INJECTABLE;INTRAVENOUS
Application: A077698 | Product #001
Applicant: CURIUM US LLC
Approved: Nov 9, 2006 | RLD: No | RS: No | Type: DISCN